FAERS Safety Report 8329114-0 (Version None)
Quarter: 2012Q2

REPORT INFORMATION
  Report Type: 
  Country: None (occurrence: None)
  Receive Date: 20120502
  Receipt Date: 20120424
  Transmission Date: 20120825
  Serious: Yes (Congenital Anomaly)
  Sender: FDA-Public Use
  Company Number: PHHY2012TR036022

PATIENT

DRUGS (2)
  1. TOPIRAMATE [Suspect]
     Dosage: MATERNAL DOSE: 100 MG
     Route: 064
  2. OXCARBAZEPINE [Suspect]
     Dosage: MATERNAL DOSE: 300 MG,
     Route: 064

REACTIONS (10)
  - CLEFT LIP AND PALATE [None]
  - CONGENITAL ADRENAL GLAND HYPOPLASIA [None]
  - RENAL DYSPLASIA [None]
  - FOETAL EXPOSURE DURING PREGNANCY [None]
  - LIMB REDUCTION DEFECT [None]
  - CARDIOMEGALY [None]
  - CONGENITAL BLADDER ANOMALY [None]
  - SINGLE FUNCTIONAL KIDNEY [None]
  - PERICARDIAL EFFUSION [None]
  - LIMB MALFORMATION [None]
